FAERS Safety Report 10701590 (Version 8)
Quarter: 2015Q3

REPORT INFORMATION
  Report Type: Report from Study
  Country: US (occurrence: US)
  Receive Date: 20150109
  Receipt Date: 20150804
  Transmission Date: 20151125
  Serious: Yes (Hospitalization, Other)
  Sender: FDA-Public Use
  Company Number: US-ABBVIE-14P-163-1325658-00

PATIENT
  Age: 63 Year
  Sex: Female
  Weight: 62 kg

DRUGS (14)
  1. BUDESONIDE. [Concomitant]
     Active Substance: BUDESONIDE
     Indication: COLITIS MICROSCOPIC
     Route: 048
     Dates: start: 201111, end: 20141215
  2. POTASSIUM CHLORIDE. [Concomitant]
     Active Substance: POTASSIUM CHLORIDE
     Indication: HYPOKALAEMIA
     Route: 048
     Dates: start: 20140902, end: 201412
  3. OMEPRAZOLE. [Concomitant]
     Active Substance: OMEPRAZOLE
     Indication: GASTRITIS
     Route: 048
     Dates: start: 201403, end: 201412
  4. LEVOTHYROXINE. [Concomitant]
     Active Substance: LEVOTHYROXINE
     Indication: HYPOTHYROIDISM
     Route: 048
     Dates: start: 2000
  5. TRAZODONE [Concomitant]
     Active Substance: TRAZODONE HYDROCHLORIDE
     Indication: INSOMNIA
     Dosage: AT BEDTIME
     Route: 048
     Dates: start: 201402, end: 201412
  6. ATENOLOL. [Concomitant]
     Active Substance: ATENOLOL
     Indication: PALPITATIONS
     Route: 048
     Dates: start: 201011
  7. ABT-333 [Suspect]
     Active Substance: DASABUVIR
     Indication: HEPATITIS C
     Route: 048
     Dates: start: 20141021, end: 20141227
  8. RIBAVIRIN. [Suspect]
     Active Substance: RIBAVIRIN
     Indication: HEPATITIS C
     Dosage: DIVIDED TWICE DAILY (TOTAL DAILY DOSE: 1000 MG)
     Route: 048
     Dates: start: 20141021, end: 20141227
  9. ATENOLOL. [Concomitant]
     Active Substance: ATENOLOL
     Indication: OVERDOSE
  10. BUDESONIDE. [Concomitant]
     Active Substance: BUDESONIDE
     Route: 048
     Dates: start: 20141216, end: 20141221
  11. ABT-450/RITONAVIR/ABT-267 [Suspect]
     Active Substance: OMBITASVIR\PARITAPREVIR\RITONAVIR
     Indication: HEPATITIS C
     Dosage: 150/100/25 MG IN 1 D
     Route: 048
     Dates: start: 20141021, end: 20141227
  12. SERTRALINE [Concomitant]
     Active Substance: SERTRALINE HYDROCHLORIDE
     Indication: DEPRESSION
     Route: 048
     Dates: start: 200802
  13. IMODIUM [Concomitant]
     Active Substance: LOPERAMIDE HYDROCHLORIDE
     Indication: COLITIS MICROSCOPIC
     Dosage: AS NEEDED
     Route: 048
     Dates: start: 201311
  14. BUDESONIDE. [Concomitant]
     Active Substance: BUDESONIDE
     Route: 048
     Dates: start: 20141222, end: 20141227

REACTIONS (1)
  - Hypercorticoidism [Recovered/Resolved]

NARRATIVE: CASE EVENT DATE: 20141216
